FAERS Safety Report 18963588 (Version 2)
Quarter: 2021Q2

REPORT INFORMATION
  Report Type: Report from Study
  Country: US (occurrence: US)
  Receive Date: 20210303
  Receipt Date: 20210401
  Transmission Date: 20210717
  Serious: Yes (Death, Hospitalization)
  Sender: FDA-Public Use
  Company Number: US-TRAVERE THERAPEUTICS, INC.-2021RTN00033

PATIENT
  Age: 0 Year
  Sex: Female

DRUGS (1)
  1. CHOLIC ACID [Suspect]
     Active Substance: CHOLIC ACID
     Indication: CEREBROHEPATORENAL SYNDROME
     Dosage: 50 MG, 1X/DAY
     Dates: start: 20210123, end: 2021

REACTIONS (3)
  - Disease progression [Fatal]
  - Weight decrease neonatal [Unknown]
  - Pulmonary oedema neonatal [Not Recovered/Not Resolved]

NARRATIVE: CASE EVENT DATE: 2021
